FAERS Safety Report 15853856 (Version 3)
Quarter: 2019Q2

REPORT INFORMATION
  Report Type: Spontaneous
  Country: US (occurrence: US)
  Receive Date: 20190122
  Receipt Date: 20190411
  Transmission Date: 20190711
  Serious: No
  Sender: FDA-Public Use
  Company Number: US-PFIZER INC-2019021509

PATIENT
  Age: 72 Year
  Sex: Male
  Weight: 131.54 kg

DRUGS (1)
  1. TESTOSTERONE CIPIONATE [Suspect]
     Active Substance: TESTOSTERONE
     Indication: ASTHENIA
     Dosage: 0.5 ML, WEEKLY (1/2 ML INJECTION IN BUM ONCE A WEEK)
     Dates: start: 20180917

REACTIONS (4)
  - Product physical issue [Unknown]
  - Product quality issue [Unknown]
  - Drug ineffective [Recovered/Resolved]
  - Poor quality product administered [Unknown]

NARRATIVE: CASE EVENT DATE: 20190109
